FAERS Safety Report 8544216-1 (Version None)
Quarter: 2012Q3

REPORT INFORMATION
  Report Type: 
  Country: None (occurrence: None)
  Receive Date: 20120727
  Receipt Date: 20120723
  Transmission Date: 20120928
  Serious: Yes (Other)
  Sender: FDA-Public Use
  Company Number: PHHY2012JP061663

PATIENT
  Age: 64 Year
  Sex: Male

DRUGS (1)
  1. ALISKIREN [Suspect]
     Route: 048

REACTIONS (6)
  - BLOOD ALDOSTERONE DECREASED [None]
  - ADRENAL CARCINOMA [None]
  - DRUG INEFFECTIVE [None]
  - BLOOD PRESSURE INCREASED [None]
  - RENAL CELL CARCINOMA [None]
  - PRIMARY HYPERALDOSTERONISM [None]
